FAERS Safety Report 5134220-8 (Version None)
Quarter: 2006Q4

REPORT INFORMATION
  Report Type: 
  Country: None (occurrence: None)
  Receive Date: 20061019
  Receipt Date: 20061017
  Transmission Date: 20070319
  Serious: Yes (Other)
  Sender: FDA-Public Use
  Company Number: TPG2006A00496

PATIENT
  Age: 85 Month
  Sex: Male

DRUGS (6)
  1. LEUPROLIDE ACETATE [Suspect]
     Indication: PROSTATE CANCER
     Dosage: 11.25 MG (11.25, 1 IN 3 M) , SUBCUTANEOUS
     Route: 058
     Dates: start: 20030101
  2. ASPIRIN [Concomitant]
  3. TORASEMIDE (TORASEMIDE) (TABLETS) [Concomitant]
  4. METOPROLOL (METOPROLOL) (TABLETS) [Concomitant]
  5. NITRENDIPINE (NITRENDIPINE) [Concomitant]
  6. KINZALKOMP (PRITOR (TABLETS)) [Concomitant]

REACTIONS (2)
  - EPISTAXIS [None]
  - HAEMATOMA [None]
